FAERS Safety Report 24087677 (Version 1)
Quarter: 2024Q3

REPORT INFORMATION
  Report Type: Spontaneous
  Country: US (occurrence: None)
  Receive Date: 20240715
  Receipt Date: 20240715
  Transmission Date: 20241017
  Serious: No
  Sender: ASTRAZENECA
  Company Number: 2024A148114

PATIENT
  Age: 34663 Day
  Sex: Female

DRUGS (1)
  1. SYMBICORT [Suspect]
     Active Substance: BUDESONIDE\FORMOTEROL FUMARATE DIHYDRATE
     Dosage: 160/4.5 UG, UNKNOWN UNKNOWN
     Route: 055

REACTIONS (5)
  - Swelling [Unknown]
  - Paraesthesia [Unknown]
  - Discomfort [Unknown]
  - Pharyngeal swelling [Unknown]
  - Insomnia [Unknown]

NARRATIVE: CASE EVENT DATE: 20240601
